FAERS Safety Report 8051005-3 (Version None)
Quarter: 2012Q1

REPORT INFORMATION
  Report Type: 
  Country: None (occurrence: None)
  Receive Date: 20120117
  Receipt Date: 20120111
  Transmission Date: 20120608
  Serious: Yes (Death)
  Sender: FDA-Public Use
  Company Number: PHHO2012JP000946

PATIENT
  Age: 81 Year
  Sex: Female

DRUGS (6)
  1. SPIRONOLACTONE [Concomitant]
     Dosage: 25 MG, QD
     Route: 048
     Dates: start: 20110523
  2. DIOVAN [Suspect]
     Dosage: 80 MG, QD
     Route: 048
     Dates: start: 20110823
  3. FAMOTIDINE [Concomitant]
     Dosage: 10 MG, BID
     Route: 048
     Dates: start: 20100716
  4. AMLODIPINE BESYLATE [Suspect]
     Indication: HYPERTENSION
     Dosage: 10 MG, QD
     Route: 048
     Dates: start: 20100823, end: 20110914
  5. URSODIOL [Concomitant]
     Dosage: 100 MG, TID
     Route: 048
     Dates: start: 20110517
  6. MAGNESIUM OXIDE [Concomitant]
     Dosage: 330 MG, TID
     Route: 048
     Dates: start: 20101228

REACTIONS (1)
  - DEATH [None]
